FAERS Safety Report 17261800 (Version 1)
Quarter: 2020Q1

REPORT INFORMATION
  Report Type: Spontaneous
  Country: FR (occurrence: FR)
  Receive Date: 20200113
  Receipt Date: 20200113
  Transmission Date: 20200409
  Serious: Yes (Other)
  Sender: FDA-Public Use
  Company Number: FR-PFIZER INC-2020010787

PATIENT
  Age: 68 Year
  Sex: Female

DRUGS (1)
  1. CRIZOTINIB [Suspect]
     Active Substance: CRIZOTINIB
     Indication: LUNG NEOPLASM MALIGNANT
     Dosage: 200 MG, 2X/DAY
     Dates: start: 20190529

REACTIONS (3)
  - Neoplasm progression [Unknown]
  - Spinal compression fracture [Unknown]
  - Spinal cord infection [Unknown]

NARRATIVE: CASE EVENT DATE: 20191030
